FAERS Safety Report 6896872-1 (Version None)
Quarter: 2010Q3

REPORT INFORMATION
  Report Type: 
  Country: None (occurrence: None)
  Receive Date: 20100802
  Receipt Date: 20070206
  Transmission Date: 20110219
  Serious: No
  Sender: FDA-Public Use
  Company Number: US-PFIZER INC-2007011024

PATIENT
  Sex: Male
  Weight: 69.4 kg

DRUGS (6)
  1. LYRICA [Suspect]
     Indication: PAIN
     Route: 048
     Dates: start: 20060201
  2. LIPITOR [Interacting]
     Indication: BLOOD CHOLESTEROL INCREASED
     Dates: start: 20050101
  3. ANXIOLYTICS [Suspect]
     Indication: ANXIETY
  4. CLONAZEPAM [Concomitant]
  5. AMITRIL [Concomitant]
  6. INSULIN [Concomitant]

REACTIONS (2)
  - DRUG INTERACTION [None]
  - NAUSEA [None]
